FAERS Safety Report 5556357-1 (Version None)
Quarter: 2007Q4

REPORT INFORMATION
  Report Type: 
  Country: None (occurrence: None)
  Receive Date: 20071213
  Receipt Date: 20070911
  Transmission Date: 20080405
  Serious: No
  Sender: FDA-Public Use
  Company Number: US-AMGEN-KDL237609

PATIENT
  Sex: Female
  Weight: 103.1 kg

DRUGS (24)
  1. ENBREL [Suspect]
     Indication: RHEUMATOID ARTHRITIS
     Route: 058
     Dates: start: 20030101
  2. AZULFIDINE EN-TABS [Concomitant]
  3. LORATADINE [Concomitant]
  4. MOBIC [Concomitant]
  5. PREVACID [Concomitant]
  6. LEVOTHYROXINE SODIUM [Concomitant]
  7. NEURONTIN [Concomitant]
  8. PRAVACHOL [Concomitant]
  9. LAC-HYDRIN [Concomitant]
  10. PREMARIN [Concomitant]
     Route: 061
  11. ALBUTEROL [Concomitant]
  12. FLOVENT [Concomitant]
  13. CITRACAL [Concomitant]
  14. VITAMIN CAP [Concomitant]
  15. CALCIUM WITH VITAMIN D [Concomitant]
  16. ASPIRIN [Concomitant]
  17. ALBUTEROL SULFATE [Concomitant]
  18. IRON [Concomitant]
  19. ZETIA [Concomitant]
  20. ZYRTEC [Concomitant]
  21. VOLTAREN [Concomitant]
  22. FISH OIL [Concomitant]
  23. VITAMIN D [Concomitant]
  24. ENALAPRIL [Concomitant]

REACTIONS (1)
  - HERPES ZOSTER [None]
